FAERS Safety Report 14364838 (Version 3)
Quarter: 2018Q2

REPORT INFORMATION
  Report Type: Spontaneous
  Country: US (occurrence: US)
  Receive Date: 20180108
  Receipt Date: 20180511
  Transmission Date: 20180711
  Serious: Yes (Death, Hospitalization, Other)
  Sender: FDA-Public Use
  Company Number: US-AEGERION PHARMACEUTICAL, INC-AEGR003533

PATIENT
  Age: 17 Year
  Sex: Male

DRUGS (7)
  1. METRELEPTIN [Suspect]
     Active Substance: METRELEPTIN
     Indication: CONGENITAL GENERALISED LIPODYSTROPHY
     Dosage: 4 UNITS, BID
     Route: 058
     Dates: start: 20010810
  2. METRELEPTIN [Suspect]
     Active Substance: METRELEPTIN
     Dosage: 15 UNITS, BID
     Route: 058
     Dates: start: 20020211, end: 20020615
  3. INSULIN [Concomitant]
     Active Substance: INSULIN NOS
     Indication: PRODUCT USED FOR UNKNOWN INDICATION
  4. METRELEPTIN [Suspect]
     Active Substance: METRELEPTIN
     Indication: HYPERTRIGLYCERIDAEMIA
     Dosage: 8 UNITS, BID
     Route: 058
     Dates: start: 20011110, end: 20020210
  5. METRELEPTIN [Suspect]
     Active Substance: METRELEPTIN
     Dosage: 15 UNITS, BID
     Route: 058
     Dates: start: 20020627
  6. METRELEPTIN [Suspect]
     Active Substance: METRELEPTIN
     Dosage: 15 UNITS, QD
     Route: 058
     Dates: start: 20030523, end: 2006
  7. METRELEPTIN [Suspect]
     Active Substance: METRELEPTIN
     Indication: DIABETES MELLITUS
     Dosage: 8 UNITS, BID
     Route: 058
     Dates: start: 20010921, end: 20011021

REACTIONS (7)
  - Localised infection [Fatal]
  - Glycosylated haemoglobin increased [Unknown]
  - Cardiac disorder [Unknown]
  - Diabetes mellitus inadequate control [Unknown]
  - Sepsis [Fatal]
  - Diabetic foot [Unknown]
  - Treatment noncompliance [Unknown]
